FAERS Safety Report 23781230 (Version 2)
Quarter: 2024Q2

REPORT INFORMATION
  Report Type: Spontaneous
  Country: US (occurrence: US)
  Receive Date: 20240425
  Receipt Date: 20240521
  Transmission Date: 20240715
  Serious: No
  Sender: FDA-Public Use
  Company Number: US-GSKCCFUS-Case-01986713_AE-110297

PATIENT
  Age: 59 Year
  Sex: Female

DRUGS (1)
  1. ADVAIR HFA [Suspect]
     Active Substance: FLUTICASONE PROPIONATE\SALMETEROL XINAFOATE
     Indication: Product used for unknown indication
     Dosage: UNK; 230/21 MCG

REACTIONS (5)
  - Dizziness [Unknown]
  - Gingival pain [Unknown]
  - Throat irritation [Unknown]
  - Oral discomfort [Unknown]
  - Product complaint [Unknown]

NARRATIVE: CASE EVENT DATE: 20240412
